FAERS Safety Report 8591200 (Version 3)
Quarter: 2012Q4

REPORT INFORMATION
  Report Type: Report from Study
  Country: US (occurrence: US)
  Receive Date: 20120601
  Receipt Date: 20120829
  Transmission Date: 20130627
  Serious: Yes (Other)
  Sender: FDA-Public Use
  Company Number: US-CELGENEUS-163-21880-12052599

PATIENT
  Age: 65 Year
  Sex: Female

DRUGS (8)
  1. REVLIMID [Suspect]
     Indication: MULTIPLE MYELOMA
     Dosage: 25 Milligram
     Route: 048
     Dates: start: 20090115, end: 20090206
  2. REVLIMID [Suspect]
     Dosage: 5 Milligram
     Route: 048
     Dates: start: 201104, end: 2011
  3. REVLIMID [Suspect]
     Dosage: 15 Milligram
     Route: 048
     Dates: start: 201201
  4. REVLIMID [Suspect]
     Route: 048
     Dates: start: 20120220, end: 20120306
  5. REVLIMID [Suspect]
     Dosage: 75 Milligram
     Route: 048
     Dates: start: 20120517, end: 20120523
  6. MELPHALAN [Suspect]
     Indication: MULTIPLE MYELOMA
     Dosage: over 30 minutes
     Route: 041
     Dates: start: 20120522, end: 20120523
  7. DEXAMETHASONE [Concomitant]
     Indication: MULTIPLE MYELOMA
     Route: 065
     Dates: start: 20090115, end: 20090206
  8. DEXAMETHASONE [Concomitant]
     Route: 065
     Dates: start: 20120220, end: 20120306

REACTIONS (1)
  - Human chorionic gonadotropin increased [Unknown]
